FAERS Safety Report 5822326-7 (Version None)
Quarter: 2008Q3

REPORT INFORMATION
  Report Type: 
  Country: None (occurrence: None)
  Receive Date: 20080723
  Receipt Date: 20080723
  Transmission Date: 20090109
  Serious: Yes (Hospitalization)
  Sender: FDA-Public Use
  Company Number: None

PATIENT
  Age: 41 Year
  Sex: Female
  Weight: 81.6475 kg

DRUGS (1)
  1. LAMICTAL [Suspect]
     Indication: PAIN
     Dosage: 25MG 2 TIMES A DAY PO
     Route: 048
     Dates: start: 20080627, end: 20080705

REACTIONS (11)
  - ABDOMINAL PAIN UPPER [None]
  - BODY TEMPERATURE INCREASED [None]
  - DRUG INEFFECTIVE [None]
  - FALL [None]
  - HEPATOMEGALY [None]
  - LYMPHADENOPATHY [None]
  - NECK PAIN [None]
  - SPLENOMEGALY [None]
  - STEVENS-JOHNSON SYNDROME [None]
  - TEMPERATURE INTOLERANCE [None]
  - VIRAL INFECTION [None]
